FAERS Safety Report 5504393-3 (Version None)
Quarter: 2007Q4

REPORT INFORMATION
  Report Type: 
  Country: None (occurrence: None)
  Receive Date: 20071101
  Receipt Date: 20071023
  Transmission Date: 20080405
  Serious: Yes (Other)
  Sender: FDA-Public Use
  Company Number: US-ELI_LILLY_AND_COMPANY-US200710000672

PATIENT
  Sex: Female

DRUGS (10)
  1. HUMULIN R [Suspect]
  2. HUMALOG [Suspect]
     Dosage: UNK, UNK
     Dates: start: 19980101
  3. DULOXETINE HYDROCHLORIDE [Concomitant]
  4. LANTUS [Concomitant]
     Dosage: UNK, UNK
  5. VICODIN [Concomitant]
  6. THYROID TAB [Concomitant]
  7. OMEPRAZOLE [Concomitant]
  8. DIOVAN [Concomitant]
  9. LIPITOR [Concomitant]
  10. LYRICA [Concomitant]

REACTIONS (4)
  - BLINDNESS UNILATERAL [None]
  - DIABETIC RETINOPATHY [None]
  - MULTIPLE SCLEROSIS [None]
  - VISION BLURRED [None]
